FAERS Safety Report 25383179 (Version 1)
Quarter: 2025Q2

REPORT INFORMATION
  Report Type: Spontaneous
  Country: US (occurrence: US)
  Receive Date: 20250602
  Receipt Date: 20250602
  Transmission Date: 20250717
  Serious: Yes (Death, Other)
  Sender: AMGEN
  Company Number: US-AMGEN-USASP2025102160

PATIENT

DRUGS (1)
  1. RITUXIMAB [Suspect]
     Active Substance: RITUXIMAB
     Indication: Transplant rejection
     Route: 065

REACTIONS (8)
  - Death [Fatal]
  - Septic shock [Fatal]
  - Pneumonia pseudomonal [Unknown]
  - Cytomegalovirus viraemia [Unknown]
  - Enterococcal bacteraemia [Unknown]
  - Neutropenia [Unknown]
  - Candida infection [Unknown]
  - Off label use [Unknown]
